FAERS Safety Report 5078106-6 (Version None)
Quarter: 2006Q3

REPORT INFORMATION
  Report Type: 
  Country: None (occurrence: None)
  Receive Date: 20060720
  Receipt Date: 20060130
  Transmission Date: 20061208
  Serious: Yes (Hospitalization)
  Sender: FDA-Public Use
  Company Number: 2006MP000109

PATIENT
  Age: 64 Year
  Sex: Male

DRUGS (5)
  1. AGGRASTAT [Suspect]
  2. CAPTOPRIL [Suspect]
     Dosage: PO
     Route: 048
  3. ASPIRIN [Concomitant]
  4. CLOPIDOGREL BISULFATE [Concomitant]
  5. HEPARIN [Concomitant]

REACTIONS (2)
  - DRUG INEFFECTIVE [None]
  - INTRACARDIAC THROMBUS [None]
